FAERS Safety Report 10950402 (Version 1)
Quarter: 2015Q1

REPORT INFORMATION
  Report Type: Spontaneous
  Country: JP (occurrence: JP)
  Receive Date: 20150324
  Receipt Date: 20150324
  Transmission Date: 20150721
  Serious: Yes (Life-Threatening, Hospitalization)
  Sender: FDA-Public Use
  Company Number: JP-PFIZER INC-2015093188

PATIENT
  Age: 60 Year
  Sex: Male

DRUGS (2)
  1. SUTENT [Suspect]
     Active Substance: SUNITINIB MALATE
     Indication: RENAL CELL CARCINOMA
     Dosage: 2 WEEKS ON, 2 WEEKS OFF
     Dates: start: 20100423
  2. SUTENT [Suspect]
     Active Substance: SUNITINIB MALATE
     Dosage: 2 WEEKS ON, 1 WEEK OFF
     Dates: end: 20120117

REACTIONS (7)
  - Platelet count decreased [Recovered/Resolved]
  - Renal cell carcinoma [Unknown]
  - Disseminated intravascular coagulation [Unknown]
  - Platelet count decreased [Recovered/Resolved]
  - Haemoglobin decreased [Not Recovered/Not Resolved]
  - Haemoglobin decreased [Not Recovered/Not Resolved]
  - Disease progression [Unknown]

NARRATIVE: CASE EVENT DATE: 201111
